FAERS Safety Report 25980372 (Version 1)
Quarter: 2025Q4

REPORT INFORMATION
  Report Type: Spontaneous
  Country: EU (occurrence: None)
  Receive Date: 20251030
  Receipt Date: 20251030
  Transmission Date: 20260118
  Serious: Yes (Hospitalization)
  Sender: B. BRAUN MEDICAL INC.
  Company Number: None

PATIENT
  Age: 68 Year
  Sex: Female
  Weight: 64 kg

DRUGS (28)
  1. METRONIDAZOLE [Suspect]
     Active Substance: METRONIDAZOLE
     Indication: Antibiotic prophylaxis
     Dosage: 1 SEULE PRISE?1 SINGLE OUTLET
  2. LIDOCAINE [Suspect]
     Active Substance: LIDOCAINE
     Indication: Anaesthesia
  3. PROPOFOL [Suspect]
     Active Substance: PROPOFOL
     Indication: Anaesthesia
  4. ROCURONIUM BROMIDE [Suspect]
     Active Substance: ROCURONIUM BROMIDE
     Indication: Anaesthesia
  5. CEFTRIAXONE SODIUM [Suspect]
     Active Substance: CEFTRIAXONE SODIUM
     Indication: Antibiotic prophylaxis
     Dosage: 1 SEULE PRISE
  6. SUGAMMADEX SODIUM [Suspect]
     Active Substance: SUGAMMADEX SODIUM
     Indication: Laparotomy
  7. LACTATED RINGERS SOLUTION [Suspect]
     Active Substance: CALCIUM CHLORIDE\POTASSIUM CHLORIDE\SODIUM CHLORIDE\SODIUM LACTATE
     Indication: Laparotomy
  8. SODIUM CHLORIDE [Suspect]
     Active Substance: SODIUM CHLORIDE
     Indication: Laparotomy
     Dosage: NACL 0.9%
  9. REMIFENTANIL HYDROCHLORIDE [Suspect]
     Active Substance: REMIFENTANIL HYDROCHLORIDE
     Indication: Anaesthesia
     Dosage: DOSE NON CONNUE?UNKNOWN DOSE
  10. CETIRIZINE HYDROCHLORIDE [Suspect]
     Active Substance: CETIRIZINE HYDROCHLORIDE
     Indication: Product used for unknown indication
  11. KETAMINE HYDROCHLORIDE [Suspect]
     Active Substance: KETAMINE HYDROCHLORIDE
     Indication: Anaesthesia
  12. DEXAMETHASONE [Suspect]
     Active Substance: DEXAMETHASONE
     Indication: Product used for unknown indication
  13. PHLOROGLUCINOL [Suspect]
     Active Substance: PHLOROGLUCINOL
     Indication: Laparotomy
  14. KETAMINE [Suspect]
     Active Substance: KETAMINE
     Indication: Laparotomy
  15. PERFALGAN [Suspect]
     Active Substance: ACETAMINOPHEN
     Indication: Pain
  16. KETOPROFEN [Suspect]
     Active Substance: KETOPROFEN
     Indication: Procedural pain
  17. NEFOPAM HYDROCHLORIDE [Suspect]
     Active Substance: NEFOPAM HYDROCHLORIDE
     Indication: Procedural pain
     Dates: start: 20250924, end: 20250924
  18. RISPERIDONE [Concomitant]
     Active Substance: RISPERIDONE
     Indication: Psychiatric decompensation
     Dosage: LE SOIR
  19. FUROSEMIDE [Concomitant]
     Active Substance: FUROSEMIDE
     Indication: Product used for unknown indication
     Dosage: LE MATIN
  20. ESCITALOPRAM [Concomitant]
     Active Substance: ESCITALOPRAM OXALATE
     Indication: Depression
  21. TROPATEPINE HYDROCHLORIDE [Concomitant]
     Active Substance: TROPATEPINE HYDROCHLORIDE
     Indication: Neuroleptic-induced deficit syndrome
     Dosage: 10MG-0-0
  22. OLANZAPINE [Concomitant]
     Active Substance: OLANZAPINE
     Indication: Mania
     Dosage: 20MG-0-0
  23. NICOTINE [Concomitant]
     Active Substance: NICOTINE
     Indication: Ex-tobacco user
     Dosage: 1.5MG X 1 ? 10 PAR JOUR
  24. POLYETHYLENE GLYCOL 4000 [Concomitant]
     Active Substance: POLYETHYLENE GLYCOL 4000
     Indication: Constipation
     Dosage: 10G-10G-10G
  25. SKENAN [Concomitant]
     Active Substance: MORPHINE SULFATE
     Indication: Pain
     Dosage: 10MG-0-10MG
  26. ACTISKENAN 5 mg, comprim? orodispersible [Concomitant]
     Indication: Pain
     Dosage: MAXIMUM 5 PAR JOUR SI BESOIN
  27. LIDOCAINE [Concomitant]
     Active Substance: LIDOCAINE
     Indication: Pain
  28. ACETAMINOPHEN [Concomitant]
     Active Substance: ACETAMINOPHEN
     Indication: Pain
     Dosage: SI BESOIN 1G MATIN, MIDI ET SOIR

REACTIONS (1)
  - Skin reaction [Recovered/Resolved]

NARRATIVE: CASE EVENT DATE: 20250925
